FAERS Safety Report 7548901-X (Version None)
Quarter: 2011Q2

REPORT INFORMATION
  Report Type: 
  Country: None (occurrence: None)
  Receive Date: 20110615
  Receipt Date: 20110610
  Transmission Date: 20111010
  Serious: Yes (Other)
  Sender: FDA-Public Use
  Company Number: DE-PFIZER INC-2011127332

PATIENT
  Age: 40 Year
  Sex: Female

DRUGS (6)
  1. LYRICA [Suspect]
     Indication: PARAESTHESIA
  2. BUDESONIDE [Concomitant]
     Dosage: 200 UG, 2X/DAY
  3. LYRICA [Suspect]
     Indication: PAIN IN EXTREMITY
     Dosage: 25 MG, 4X/DAY
     Dates: start: 20110504
  4. BRONCHORETARD [Concomitant]
     Indication: ASTHMA
     Dosage: 350 MG, 2X/DAY
  5. FORMOTEROL [Concomitant]
     Dosage: 12 UG, 2X/DAY
  6. SALBUTAMOL [Concomitant]
     Indication: ASTHMA
     Dosage: UNK

REACTIONS (2)
  - DYSPNOEA [None]
  - CHEST DISCOMFORT [None]
